FAERS Safety Report 13135097 (Version 1)
Quarter: 2017Q1

REPORT INFORMATION
  Report Type: Spontaneous
  Country: US (occurrence: US)
  Receive Date: 20170120
  Receipt Date: 20170120
  Transmission Date: 20170428
  Serious: Yes (Other)
  Sender: FDA-Public Use
  Company Number: US-OTSUKA-2017_000742

PATIENT
  Age: 17 Year
  Sex: Male

DRUGS (3)
  1. TOLVAPTAN [Suspect]
     Active Substance: TOLVAPTAN
     Indication: ECTOPIC ANTIDIURETIC HORMONE SECRETION
     Dosage: 15 MG, UNK
     Route: 065
  2. TOLVAPTAN [Suspect]
     Active Substance: TOLVAPTAN
     Indication: HYPONATRAEMIA
  3. TOLVAPTAN [Suspect]
     Active Substance: TOLVAPTAN
     Indication: GANGLIONEUROMA

REACTIONS (6)
  - Mental status changes [Unknown]
  - Blood sodium increased [Unknown]
  - Rapid correction of hyponatraemia [Unknown]
  - Seizure [Unknown]
  - Osmotic demyelination syndrome [Unknown]
  - Drug administered to patient of inappropriate age [Unknown]
